FAERS Safety Report 9181045 (Version 1)
Quarter: 2013Q1

REPORT INFORMATION
  Report Type: Spontaneous
  Country: US (occurrence: US)
  Receive Date: 20130322
  Receipt Date: 20130322
  Transmission Date: 20140127
  Serious: Yes (Other)
  Sender: FDA-Public Use
  Company Number: US-BAYER-2013-032609

PATIENT
  Age: 48 Year
  Sex: Female

DRUGS (1)
  1. YAZ [Suspect]
     Indication: ENDOMETRIAL DISORDER
     Dosage: 3MG/0.02MG
     Route: 048
     Dates: start: 200712, end: 200811

REACTIONS (5)
  - Thrombosis [None]
  - Pain in extremity [None]
  - Local swelling [None]
  - Insomnia [None]
  - Off label use [None]
